FAERS Safety Report 8557273-3 (Version None)
Quarter: 2012Q3

REPORT INFORMATION
  Report Type: 
  Country: None (occurrence: None)
  Receive Date: 20120801
  Receipt Date: 20120729
  Transmission Date: 20120928
  Serious: Yes (Other)
  Sender: FDA-Public Use
  Company Number: IL-PFIZER INC-2012174340

PATIENT
  Sex: Male

DRUGS (1)
  1. SULFASALAZINE [Suspect]
     Dosage: UNK
     Route: 064

REACTIONS (2)
  - JAUNDICE [None]
  - MATERNAL EXPOSURE TIMING UNSPECIFIED [None]
